FAERS Safety Report 8627590 (Version 2)
Quarter: 2014Q1

REPORT INFORMATION
  Report Type: Spontaneous
  Country: US (occurrence: None)
  Receive Date: 20120323
  Receipt Date: 20130305
  Transmission Date: 20141002
  Serious: Yes (Hospitalization, Other)
  Sender: FDA-Public Use
  Company Number: 163-21880-11063891

PATIENT
  Age: 75 Year
  Sex: Male

DRUGS (1)
  1. REVLIMID [Suspect]
     Indication: PLASMA CELL MYELOMA
     Route: 048
     Dates: start: 20110210

REACTIONS (10)
  - Interstitial lung disease [None]
  - Condition aggravated [None]
  - Thrombosis [None]
  - Faeces discoloured [None]
  - Contusion [None]
  - Diarrhoea [None]
  - Constipation [None]
  - Anaemia [None]
  - Miliaria [None]
  - Thrombosis [None]
